FAERS Safety Report 6620880-9 (Version None)
Quarter: 2010Q1

REPORT INFORMATION
  Report Type: 
  Country: None (occurrence: None)
  Receive Date: 20100303
  Receipt Date: 20100216
  Transmission Date: 20100710
  Serious: Yes (Death, Other)
  Sender: FDA-Public Use
  Company Number: 2010000478

PATIENT
  Age: 41 Year
  Sex: Female

DRUGS (7)
  1. ERLOTINIB HYDROCHLORIDE [Suspect]
     Indication: GLIOBLASTOMA MULTIFORME
     Dosage: (450 MG), ORAL
     Route: 048
     Dates: start: 20091209, end: 20100113
  2. DASATINIB [Suspect]
     Indication: GLIOBLASTOMA MULTIFORME
     Dosage: (180 MG), ORAL
     Route: 048
     Dates: start: 20091209, end: 20100113
  3. DECADRON [Concomitant]
  4. LOPERAMIDE HYDROCHLORIDE [Concomitant]
  5. LOVENOX [Concomitant]
  6. LEVETIRACETAM [Concomitant]
  7. ONDANSETRON [Concomitant]

REACTIONS (14)
  - ABDOMINAL DISTENSION [None]
  - ACTIVATED PARTIAL THROMBOPLASTIN TIME PROLONGED [None]
  - ALANINE AMINOTRANSFERASE INCREASED [None]
  - ASPARTATE AMINOTRANSFERASE INCREASED [None]
  - BLOOD CREATININE INCREASED [None]
  - BLOOD POTASSIUM INCREASED [None]
  - CARDIAC ARREST [None]
  - CONVULSION [None]
  - HAEMOGLOBIN DECREASED [None]
  - LUNG INFILTRATION [None]
  - MYDRIASIS [None]
  - UNRESPONSIVE TO STIMULI [None]
  - VITAL FUNCTIONS ABNORMAL [None]
  - WHEEZING [None]
